FAERS Safety Report 7319885-4 (Version None)
Quarter: 2011Q1

REPORT INFORMATION
  Report Type: 
  Country: None (occurrence: None)
  Receive Date: 20110228
  Receipt Date: 20110214
  Transmission Date: 20110831
  Serious: No
  Sender: FDA-Public Use
  Company Number: A0892032A

PATIENT
  Age: 21 Year
  Sex: Female
  Weight: 88.2 kg

DRUGS (2)
  1. SEROQUEL XR [Concomitant]
     Dosage: 50MG PER DAY
  2. LAMOTRIGINE [Suspect]
     Indication: BIPOLAR DISORDER
     Dosage: 200MG TWICE PER DAY
     Route: 048
     Dates: start: 20090607, end: 20101111

REACTIONS (1)
  - DRUG EXPOSURE DURING PREGNANCY [None]
